FAERS Safety Report 9381067 (Version 2)
Quarter: 2013Q3

REPORT INFORMATION
  Report Type: Spontaneous
  Country: US (occurrence: US)
  Receive Date: 20130703
  Receipt Date: 20130906
  Transmission Date: 20140515
  Serious: Yes (Other)
  Sender: FDA-Public Use
  Company Number: US-BIOGENIDEC-2013BI058852

PATIENT
  Age: 60 Year
  Sex: Female

DRUGS (1)
  1. AVONEX [Suspect]
     Indication: MULTIPLE SCLEROSIS
     Route: 030
     Dates: start: 20130404, end: 20130630

REACTIONS (10)
  - Swelling [Unknown]
  - Thyroid neoplasm [Not Recovered/Not Resolved]
  - Glossitis [Recovered/Resolved]
  - Glossodynia [Recovered/Resolved]
  - Tongue blistering [Recovered/Resolved]
  - Swollen tongue [Recovered/Resolved]
  - Hypoacusis [Not Recovered/Not Resolved]
  - Influenza like illness [Recovered/Resolved]
  - Muscle spasms [Recovered/Resolved]
  - Fatigue [Recovered/Resolved]
